FAERS Safety Report 23984765 (Version 1)
Quarter: 2024Q2

REPORT INFORMATION
  Report Type: Other
  Country: CN (occurrence: CN)
  Receive Date: 20240618
  Receipt Date: 20240618
  Transmission Date: 20240716
  Serious: Yes (Hospitalization)
  Sender: FDA-Public Use
  Company Number: CN-ASTELLAS-2024US017105

PATIENT
  Age: 49 Year
  Sex: Male

DRUGS (1)
  1. ISAVUCONAZOLE [Suspect]
     Active Substance: ISAVUCONAZOLE
     Indication: Pneumonia fungal
     Dosage: 0.2 G, THRICE DAILY
     Route: 041
     Dates: start: 20240511, end: 20240516

REACTIONS (3)
  - Hepatic function abnormal [Recovering/Resolving]
  - Condition aggravated [Recovering/Resolving]
  - Off label use [Unknown]

NARRATIVE: CASE EVENT DATE: 20240511
